FAERS Safety Report 12796760 (Version 2)
Quarter: 2016Q3

REPORT INFORMATION
  Report Type: Spontaneous
  Country: US (occurrence: US)
  Receive Date: 20160929
  Receipt Date: 20160929
  Transmission Date: 20161109
  Serious: Yes (Other)
  Sender: FDA-Public Use
  Company Number: US-KOWA-15US001086

PATIENT
  Age: 53 Year
  Sex: Male

DRUGS (5)
  1. LOVAZA [Concomitant]
     Active Substance: OMEGA-3-ACID ETHYL ESTERS
     Dosage: 1 G, QD
  2. BABY ASPIRIN [Concomitant]
     Active Substance: ASPIRIN
     Dosage: UNK
  3. VITAMIN D                          /00107901/ [Concomitant]
     Active Substance: ERGOCALCIFEROL
     Dosage: UNK
  4. ZETIA [Suspect]
     Active Substance: EZETIMIBE
     Dosage: 10 MG, UNK
  5. LIVALO [Suspect]
     Active Substance: PITAVASTATIN CALCIUM
     Dosage: 4 MG, QD

REACTIONS (1)
  - Blood creatine phosphokinase increased [Unknown]

NARRATIVE: CASE EVENT DATE: 20150716
